FAERS Safety Report 8374372-X (Version None)
Quarter: 2012Q2

REPORT INFORMATION
  Report Type: 
  Country: None (occurrence: None)
  Receive Date: 20120521
  Receipt Date: 20120514
  Transmission Date: 20120825
  Serious: Yes (Hospitalization)
  Sender: FDA-Public Use
  Company Number: US-BAYER-2011-021663

PATIENT
  Age: 34 Year
  Sex: Female
  Weight: 121.54 kg

DRUGS (5)
  1. ASPIRIN [Concomitant]
  2. YASMIN [Suspect]
     Indication: ACNE
  3. CELEBREX [Concomitant]
  4. CLINDAMYCIN [Concomitant]
  5. YASMIN [Suspect]
     Indication: CONTRACEPTION
     Dosage: UNK
     Dates: start: 20041001, end: 20061001

REACTIONS (3)
  - DYSPNOEA [None]
  - PAIN [None]
  - PULMONARY EMBOLISM [None]
